FAERS Safety Report 4905889-5 (Version None)
Quarter: 2006Q1

REPORT INFORMATION
  Report Type: 
  Country: None (occurrence: None)
  Receive Date: 20060203
  Receipt Date: 20060104
  Transmission Date: 20060701
  Serious: Yes (Death, Hospitalization)
  Sender: FDA-Public Use
  Company Number: 430004M06USA

PATIENT
  Age: 71 Year
  Sex: Female

DRUGS (6)
  1. NOVANTRONE [Suspect]
     Indication: ACUTE MYELOID LEUKAEMIA
     Dosage: 12 MG, 1 IN 1 DAYS, INTRAVENOUS
     Route: 042
     Dates: start: 20051109, end: 20051113
  2. INVESTIGATIONAL DRUG [Suspect]
  3. ETOPOSIDE [Suspect]
     Dosage: 146 MG, 1 IN 1 DAYS, INTRAVENOUS
     Route: 042
     Dates: start: 20051109, end: 20051113
  4. CYTARABINE [Suspect]
     Dosage: 1.4 G, 1 IN 1 DAYS, INTRAVENOUS
     Route: 042
     Dates: start: 20051109, end: 20051113
  5. DIPHENHYDRAMINE HCL [Concomitant]
  6. DEMEROL [Concomitant]

REACTIONS (2)
  - GASTROINTESTINAL HAEMORRHAGE [None]
  - SMALL INTESTINAL OBSTRUCTION [None]
